FAERS Safety Report 8850873 (Version 1)
Quarter: 2012Q4

REPORT INFORMATION
  Report Type: 
  Country: US (occurrence: US)
  Receive Date: 20121019
  Receipt Date: 20121019
  Transmission Date: 20130627
  Serious: No
  Sender: FDA-Public Use
  Company Number: US-PFIZER INC-2012259751

PATIENT
  Age: 49 Year
  Sex: Male
  Weight: 87.08 kg

DRUGS (1)
  1. CHANTIX [Suspect]
     Indication: SMOKING CESSATION THERAPY
     Dosage: 0.5 mg, 1x/day
     Route: 048

REACTIONS (3)
  - Heart rate increased [Unknown]
  - Sleep disorder [Unknown]
  - Dyspepsia [Unknown]
